FAERS Safety Report 9648601 (Version 1)
Quarter: 2013Q4

REPORT INFORMATION
  Report Type: Spontaneous
  Country: US (occurrence: None)
  Receive Date: 20131025
  Receipt Date: 20131025
  Transmission Date: 20140711
  Serious: No
  Sender: FDA-Public Use
  Company Number: None

PATIENT
  Age: 76 Year
  Sex: Female
  Weight: 68.04 kg

DRUGS (19)
  1. RANEPA [Suspect]
     Route: 048
     Dates: start: 20130905, end: 20130914
  2. SYNTHROID [Concomitant]
  3. ORTHO-EST [Concomitant]
  4. CRESTOR [Concomitant]
  5. RESTORIL [Concomitant]
  6. ZANTAC [Concomitant]
  7. MACRODANTIN [Concomitant]
  8. CELEXA [Concomitant]
  9. ANTIVERT [Concomitant]
  10. ASPIRIN [Concomitant]
  11. LASIX [Concomitant]
  12. POTASSIUM [Concomitant]
  13. B-12 [Concomitant]
  14. CENTRUM SENIOR [Concomitant]
  15. TYLENOL [Concomitant]
  16. VITAMIN E [Concomitant]
  17. CALCIUM [Concomitant]
  18. VITAMIN D-3 [Concomitant]
  19. VITAMIN C [Concomitant]

REACTIONS (4)
  - Middle insomnia [None]
  - Syncope [None]
  - Fall [None]
  - Head injury [None]
